FAERS Safety Report 21739133 (Version 1)
Quarter: 2022Q4

REPORT INFORMATION
  Report Type: Spontaneous
  Country: CA (occurrence: CA)
  Receive Date: 20221216
  Receipt Date: 20221216
  Transmission Date: 20230113
  Serious: Yes (Other)
  Sender: FDA-Public Use
  Company Number: CA-AUROBINDO-AUR-APL-2022-052102

PATIENT
  Age: 56 Year
  Sex: Female

DRUGS (3)
  1. MONTELUKAST [Suspect]
     Active Substance: MONTELUKAST SODIUM
     Indication: Chronic spontaneous urticaria
     Dosage: UNK , ONCE A DAY
     Route: 048
  2. CLARITIN [Concomitant]
     Active Substance: LORATADINE
     Indication: Chronic spontaneous urticaria
     Dosage: UNK
     Route: 065
  3. DIPHENHYDRAMINE [Concomitant]
     Active Substance: DIPHENHYDRAMINE
     Indication: Chronic spontaneous urticaria
     Dosage: UNK
     Route: 065

REACTIONS (13)
  - Blood pressure systolic increased [Unknown]
  - Abdominal distension [Unknown]
  - Alopecia [Unknown]
  - Anxiety disorder [Unknown]
  - Dyspnoea [Unknown]
  - General physical health deterioration [Unknown]
  - Headache [Unknown]
  - Ill-defined disorder [Unknown]
  - Nausea [Unknown]
  - Pain [Unknown]
  - Paraesthesia [Unknown]
  - Urticaria [Unknown]
  - Weight increased [Unknown]
